FAERS Safety Report 8402340-8 (Version None)
Quarter: 2012Q2

REPORT INFORMATION
  Report Type: 
  Country: None (occurrence: None)
  Receive Date: 20120601
  Receipt Date: 20120524
  Transmission Date: 20120825
  Serious: Yes (Death, Life-Threatening, Hospitalization)
  Sender: FDA-Public Use
  Company Number: US-BRISTOL-MYERS SQUIBB COMPANY-16572588

PATIENT
  Age: 53 Year
  Sex: Male
  Weight: 42 kg

DRUGS (5)
  1. OXYCONTIN [Concomitant]
     Indication: TUMOUR PAIN
     Dates: start: 20120201
  2. CETUXIMAB [Suspect]
     Indication: HEAD AND NECK CANCER
     Route: 042
     Dates: start: 20120307, end: 20120307
  3. FLUOROURACIL [Suspect]
     Indication: HEAD AND NECK CANCER
     Dosage: LAST DOSE: 20APR12
     Route: 042
     Dates: start: 20120319, end: 20120420
  4. CARBOPLATIN [Suspect]
     Indication: HEAD AND NECK CANCER
     Dosage: 1DF= 5AUC LAST DOSE: 16APR12
     Route: 042
     Dates: start: 20120319, end: 20120416
  5. OXYCODONE HYDROCHLORIDE [Concomitant]
     Indication: TUMOUR PAIN
     Dates: start: 20120201

REACTIONS (8)
  - PLATELET COUNT DECREASED [None]
  - SEPSIS [None]
  - TRACHEAL OBSTRUCTION [None]
  - HYPOALBUMINAEMIA [None]
  - WHITE BLOOD CELL COUNT DECREASED [None]
  - HYPOKALAEMIA [None]
  - NEUTROPHIL COUNT DECREASED [None]
  - FALL [None]
